FAERS Safety Report 10760807 (Version 1)
Quarter: 2015Q1

REPORT INFORMATION
  Report Type: Spontaneous
  Country: US (occurrence: None)
  Receive Date: 20150203
  Receipt Date: 20150203
  Transmission Date: 20150721
  Serious: Yes (Death, Life-Threatening, Hospitalization, Disabling)
  Sender: FDA-Public Use
  Company Number: None

PATIENT
  Age: 35 Year
  Sex: Male
  Weight: 108.86 kg

DRUGS (1)
  1. DAPSON [Suspect]
     Active Substance: DAPSONE
     Indication: PNEUMONIA
     Route: 048
     Dates: start: 20141222, end: 20150123

REACTIONS (1)
  - Hepatitis [None]

NARRATIVE: CASE EVENT DATE: 20150112
